FAERS Safety Report 9608118 (Version 1)
Quarter: 2013Q4

REPORT INFORMATION
  Report Type: Spontaneous
  Country: US (occurrence: US)
  Receive Date: 20131009
  Receipt Date: 20131009
  Transmission Date: 20140711
  Serious: No
  Sender: FDA-Public Use
  Company Number: US-PFIZER INC-2013286662

PATIENT
  Age: 58 Year
  Sex: Female
  Weight: 66.21 kg

DRUGS (3)
  1. NEURONTIN [Suspect]
     Indication: FIBROMYALGIA
     Dosage: UNK
  2. NEURONTIN [Suspect]
     Indication: NERVE INJURY
  3. HYDROCODONE [Concomitant]
     Indication: PAIN
     Dosage: UNK, AS NEEDED

REACTIONS (8)
  - Off label use [Recovered/Resolved]
  - Dyspepsia [Recovered/Resolved]
  - Swelling [Recovered/Resolved]
  - Nausea [Recovered/Resolved]
  - Dry mouth [Recovered/Resolved]
  - Burning sensation [Recovered/Resolved]
  - Hypoaesthesia [Recovered/Resolved]
  - Drug ineffective for unapproved indication [Unknown]
